FAERS Safety Report 18366337 (Version 1)
Quarter: 2020Q4

REPORT INFORMATION
  Report Type: Report from Study
  Country: CA (occurrence: CA)
  Receive Date: 20201009
  Receipt Date: 20201009
  Transmission Date: 20210114
  Serious: Yes (Other)
  Sender: FDA-Public Use
  Company Number: CA-PFIZER INC-2020381076

PATIENT
  Age: 61 Year
  Sex: Female
  Weight: 67 kg

DRUGS (3)
  1. BEVACIZUMAB. [Suspect]
     Active Substance: BEVACIZUMAB
     Indication: GLIOBLASTOMA
     Dosage: 595 MG, EVERY 2 WEEKS
     Route: 042
  2. BEVACIZUMAB. [Suspect]
     Active Substance: BEVACIZUMAB
     Dosage: 644 MG, EVERY 2 WEEKS
     Route: 042
  3. BEVACIZUMAB. [Suspect]
     Active Substance: BEVACIZUMAB
     Indication: GLIOBLASTOMA
     Dosage: 595 MG, EVERY 2 WEEKS
     Route: 042

REACTIONS (10)
  - Blood pressure systolic increased [Unknown]
  - Heart rate increased [Unknown]
  - Blood pressure increased [Unknown]
  - Headache [Unknown]
  - Weight increased [Unknown]
  - Blood pressure fluctuation [Unknown]
  - Crohn^s disease [Unknown]
  - Eastern Cooperative Oncology Group performance status worsened [Unknown]
  - Weight decreased [Unknown]
  - Body temperature decreased [Unknown]
